FAERS Safety Report 7250686-1 (Version None)
Quarter: 2011Q1

REPORT INFORMATION
  Report Type: 
  Country: None (occurrence: None)
  Receive Date: 20110121
  Receipt Date: 20110121
  Transmission Date: 20110831
  Serious: Yes (Other)
  Sender: FDA-Public Use
  Company Number: None

PATIENT
  Age: 44 Year
  Sex: Female
  Weight: 64.8644 kg

DRUGS (3)
  1. TRIAD PLUS ALCOHOL SWABSTICKS 70% ISOPROPYL ALCOHOL TRIAD DISPOSABLES [Suspect]
     Indication: INFECTION PROPHYLAXIS
     Dosage: 3+ SWABSTICKS DAILY/WEEKLY TOP
     Route: 061
     Dates: start: 20101027, end: 20110117
  2. TRIAD PLUS ALCOHOL SWABSTICKS 70% ISOPROPYL ALCOHOL TRIAD DISPOSABLES [Suspect]
     Indication: DRUG HYPERSENSITIVITY
     Dosage: 3+ SWABSTICKS DAILY/WEEKLY TOP
     Route: 061
     Dates: start: 20101027, end: 20110117
  3. TRIAD PLUS ALCOHOL SWABSTICKS 70% ISOPROPYL ALCOHOL TRIAD DISPOSABLES [Suspect]

REACTIONS (3)
  - INJECTION SITE INFECTION [None]
  - INJECTION SITE ERYTHEMA [None]
  - INJECTION SITE IRRITATION [None]
